FAERS Safety Report 6472851-3 (Version None)
Quarter: 2009Q4

REPORT INFORMATION
  Report Type: 
  Country: None (occurrence: None)
  Receive Date: 20091203
  Receipt Date: 20081217
  Transmission Date: 20100525
  Serious: No
  Sender: FDA-Public Use
  Company Number: US-AMGEN-KDL324568

PATIENT
  Sex: Female

DRUGS (2)
  1. ENBREL [Suspect]
     Indication: PSORIATIC ARTHROPATHY
     Route: 058
     Dates: start: 20080514
  2. METHOTREXATE [Concomitant]
     Route: 048

REACTIONS (5)
  - COUGH [None]
  - DYSPNOEA [None]
  - FATIGUE [None]
  - PSORIASIS [None]
  - PSORIATIC ARTHROPATHY [None]
